FAERS Safety Report 5357484-4 (Version None)
Quarter: 2007Q2

REPORT INFORMATION
  Report Type: 
  Country: None (occurrence: None)
  Receive Date: 20070614
  Receipt Date: 20070604
  Transmission Date: 20071010
  Serious: Yes (Hospitalization, Other)
  Sender: FDA-Public Use
  Company Number: US-BRISTOL-MYERS SQUIBB COMPANY-11678133

PATIENT
  Age: 4 Day
  Sex: Female

DRUGS (8)
  1. ZERIT [Suspect]
     Indication: HIV TEST POSITIVE
     Dosage: ONGOING GESTATIONAL WEEKS 2 THROUGH 10
     Route: 064
     Dates: start: 19970529, end: 19970701
  2. VIDEX [Suspect]
     Indication: HIV INFECTION
     Dosage: ONGOING AT GESTATIONAL WEEKS 2 THROUGH 10
     Route: 064
     Dates: start: 19970529, end: 19970701
  3. FORTOVASE [Suspect]
     Indication: HIV TEST POSITIVE
     Dosage: INITIATED AT GESTATIONAL WEEK 29
     Route: 064
     Dates: start: 19971112, end: 19980119
  4. RETROVIR [Suspect]
     Indication: HIV TEST POSITIVE
     Dosage: INITIATED AT GESTATIONAL WEEK 10
     Route: 064
     Dates: start: 19970701, end: 19980119
  5. RETROVIR [Suspect]
     Indication: PROPHYLAXIS AGAINST HIV INFECTION
     Dosage: INFUSION AT DELIVERY
     Route: 048
     Dates: start: 19980101, end: 19980301
  6. CRIXIVAN [Suspect]
     Indication: HIV TEST POSITIVE
     Dosage: ONGOING GESTATIONAL WEEK 2 THROUGH 10
     Route: 064
     Dates: start: 19970529, end: 19970701
  7. EPIVIR [Suspect]
     Indication: HIV TEST POSITIVE
     Dosage: INITIATED AT GESTATIONAL WEEK 29
     Route: 064
     Dates: start: 19971112, end: 19980119
  8. EPIVIR [Suspect]
     Indication: PROPHYLAXIS AGAINST HIV INFECTION
     Dosage: 6 WEEK COURSE AFTER BIRTH
     Route: 048
     Dates: start: 19980101, end: 19980301

REACTIONS (7)
  - ANAEMIA MACROCYTIC [None]
  - CEREBRAL DISORDER [None]
  - DRUG EXPOSURE DURING PREGNANCY [None]
  - ELECTROENCEPHALOGRAM ABNORMAL [None]
  - FOETAL GROWTH RETARDATION [None]
  - NEUTROPENIA [None]
  - RHINITIS [None]
